FAERS Safety Report 8573460-2 (Version None)
Quarter: 2012Q3

REPORT INFORMATION
  Report Type: 
  Country: None (occurrence: None)
  Receive Date: 20120806
  Receipt Date: 20120727
  Transmission Date: 20120928
  Serious: Yes (Hospitalization)
  Sender: FDA-Public Use
  Company Number: US-ASTRAZENECA-2008UW25899

PATIENT
  Age: 77 Year
  Sex: Female

DRUGS (3)
  1. PLENDIL [Suspect]
     Route: 048
     Dates: start: 20040629
  2. TOPROL-XL [Suspect]
     Route: 048
     Dates: start: 20040629
  3. TOPROL-XL [Suspect]
     Dosage: TAKING HALF OF THE TABLET
     Route: 048

REACTIONS (4)
  - HYPERTENSION [None]
  - INTENTIONAL DRUG MISUSE [None]
  - CONCUSSION [None]
  - ATRIAL FIBRILLATION [None]
